FAERS Safety Report 19310306 (Version 1)
Quarter: 2021Q2

REPORT INFORMATION
  Report Type: Spontaneous
  Country: FI (occurrence: FI)
  Receive Date: 20210526
  Receipt Date: 20210526
  Transmission Date: 20210717
  Serious: Yes (Hospitalization, Other)
  Sender: FDA-Public Use
  Company Number: FI-BAYER-2020-243912

PATIENT
  Age: 29 Year
  Sex: Female

DRUGS (10)
  1. CANDESARTAN. [Concomitant]
     Active Substance: CANDESARTAN
     Indication: MIGRAINE
  2. CANDESARTAN. [Concomitant]
     Active Substance: CANDESARTAN
     Indication: MIGRAINE
  3. BRICANYL [Concomitant]
     Active Substance: TERBUTALINE SULFATE
  4. BRICANYL [Concomitant]
     Active Substance: TERBUTALINE SULFATE
     Indication: ASTHMA
  5. BRICANYL [Concomitant]
     Active Substance: TERBUTALINE SULFATE
     Indication: ASTHMA
  6. BECLOMET [BECLOMETASONE DIPROPIONATE] [Concomitant]
     Indication: ASTHMA
  7. CANDESARTAN. [Concomitant]
     Active Substance: CANDESARTAN
     Indication: MIGRAINE
  8. KYLEENA [Suspect]
     Active Substance: LEVONORGESTREL
     Indication: CONTRACEPTION
     Dosage: 17.5 ?G PER DAY CONTINUOUSLY
     Route: 015
     Dates: start: 201802, end: 20201015
  9. BECLOMET [BECLOMETASONE DIPROPIONATE] [Concomitant]
     Indication: ASTHMA
  10. BECLOMETASONA [BECLOMETASONE] [Concomitant]

REACTIONS (8)
  - Drug ineffective [Unknown]
  - Post abortion haemorrhage [Recovered/Resolved]
  - Amniorrhoea [Recovered/Resolved]
  - Pregnancy with contraceptive device [Recovered/Resolved]
  - Abdominal discomfort [Recovered/Resolved]
  - Abortion spontaneous [Recovered/Resolved]
  - Haemorrhage in pregnancy [Recovered/Resolved]
  - Device issue [Recovered/Resolved]

NARRATIVE: CASE EVENT DATE: 20200903
